FAERS Safety Report 21064962 (Version 3)
Quarter: 2022Q3

REPORT INFORMATION
  Report Type: Report from Study
  Country: US (occurrence: US)
  Receive Date: 20220711
  Receipt Date: 20220727
  Transmission Date: 20221026
  Serious: Yes (Hospitalization, Other)
  Sender: FDA-Public Use
  Company Number: US-JNJFOC-20220601883

PATIENT
  Age: 67 Year
  Sex: Female
  Weight: 68.6 kg

DRUGS (3)
  1. EPOPROSTENOL SODIUM [Suspect]
     Active Substance: EPOPROSTENOL SODIUM
     Indication: Pulmonary arterial hypertension
     Route: 042
  2. EPOPROSTENOL SODIUM [Suspect]
     Active Substance: EPOPROSTENOL SODIUM
     Indication: Pulmonary arterial hypertension
  3. SILDENAFIL CITRATE [Concomitant]
     Active Substance: SILDENAFIL CITRATE

REACTIONS (7)
  - Ileus [Unknown]
  - Angina pectoris [Unknown]
  - Blood pressure abnormal [Unknown]
  - Abdominal pain upper [Unknown]
  - Spinal operation [Unknown]
  - Post procedural complication [Unknown]
  - Cough [Unknown]

NARRATIVE: CASE EVENT DATE: 20220422
